FAERS Safety Report 7386173-X (Version None)
Quarter: 2011Q1

REPORT INFORMATION
  Report Type: 
  Country: None (occurrence: None)
  Receive Date: 20110331
  Receipt Date: 20110321
  Transmission Date: 20110831
  Serious: Yes (Other)
  Sender: FDA-Public Use
  Company Number: IT-ELI_LILLY_AND_COMPANY-IT201103006063

PATIENT
  Sex: Female

DRUGS (1)
  1. XERISTAR [Suspect]
     Dosage: UNK
     Dates: start: 20110114, end: 20110202

REACTIONS (1)
  - ALLERGIC OEDEMA [None]
